FAERS Safety Report 9129208 (Version 1)
Quarter: 2013Q1

REPORT INFORMATION
  Report Type: Other
  Country: US (occurrence: US)
  Receive Date: 20130125
  Receipt Date: 20130125
  Transmission Date: 20140127
  Serious: Yes (Death)
  Sender: FDA-Public Use
  Company Number: US-FRI-1000042037

PATIENT
  Age: 32 Year
  Sex: Male

DRUGS (6)
  1. CITALOPRAM [Suspect]
  2. OXYCODONE [Suspect]
  3. TRAZODONE [Suspect]
  4. DOXYLAMINE [Suspect]
  5. MIRTAZAPINE [Suspect]
  6. ACETAMINOPHEN [Suspect]

REACTIONS (1)
  - Death [Fatal]
